FAERS Safety Report 23079416 (Version 1)
Quarter: 2023Q4

REPORT INFORMATION
  Report Type: Spontaneous
  Country: US (occurrence: US)
  Receive Date: 20231018
  Receipt Date: 20231018
  Transmission Date: 20240110
  Serious: Yes (Hospitalization)
  Sender: FDA-Public Use
  Company Number: US-MYLANLABS-2023M1108602

PATIENT
  Age: 39 Year
  Sex: Female

DRUGS (2)
  1. HEPARIN [Suspect]
     Active Substance: HEPARIN SODIUM
     Indication: Anticoagulant therapy
     Dosage: UNK
     Route: 065
  2. AMIODARONE [Concomitant]
     Active Substance: AMIODARONE
     Indication: Atrial fibrillation
     Dosage: UNK, INFUSION
     Route: 065

REACTIONS (4)
  - Pericardial haemorrhage [Recovering/Resolving]
  - Cardiac tamponade [Recovering/Resolving]
  - Cardiac arrest [Recovered/Resolved]
  - Shock [Recovered/Resolved]
